FAERS Safety Report 22643136 (Version 1)
Quarter: 2023Q2

REPORT INFORMATION
  Report Type: Spontaneous
  Country: US (occurrence: US)
  Receive Date: 20230627
  Receipt Date: 20230627
  Transmission Date: 20230721
  Serious: No
  Sender: FDA-Public Use
  Company Number: US-002147023-NVSC2023US146034

PATIENT
  Age: 34 Year
  Sex: Female
  Weight: 72.5 kg

DRUGS (2)
  1. COSENTYX [Suspect]
     Active Substance: SECUKINUMAB
     Indication: Psoriasis
     Dosage: 300 MG, QMO
     Route: 058
     Dates: start: 20220908
  2. COSENTYX [Suspect]
     Active Substance: SECUKINUMAB
     Dosage: UNK
     Route: 065
     Dates: start: 20230616

REACTIONS (1)
  - Lymphadenopathy [Recovering/Resolving]

NARRATIVE: CASE EVENT DATE: 20230401
